FAERS Safety Report 6282528-5 (Version None)
Quarter: 2009Q3

REPORT INFORMATION
  Report Type: 
  Country: None (occurrence: None)
  Receive Date: 20090724
  Receipt Date: 20090716
  Transmission Date: 20100115
  Serious: Yes (Other)
  Sender: FDA-Public Use
  Company Number: SE-NOVOPROD-289489

PATIENT
  Age: 18 Year
  Sex: Male
  Weight: 56 kg

DRUGS (2)
  1. NORDITROPIN [Suspect]
     Indication: GROWTH RETARDATION
     Dosage: UNKNOWN
     Dates: start: 20050101, end: 20090605
  2. REMICADE [Concomitant]
     Indication: CROHN'S DISEASE

REACTIONS (1)
  - ANOGENITAL DYSPLASIA [None]
